FAERS Safety Report 17029461 (Version 2)
Quarter: 2019Q4

REPORT INFORMATION
  Report Type: Spontaneous
  Country: FR (occurrence: MA)
  Receive Date: 20191114
  Receipt Date: 20191128
  Transmission Date: 20200122
  Serious: Yes (Other)
  Sender: FDA-Public Use
  Company Number: FR-ASTELLAS-2019US040192

PATIENT
  Age: 75 Year
  Sex: Male

DRUGS (2)
  1. XTANDI [Suspect]
     Active Substance: ENZALUTAMIDE
     Dosage: 80 MG, (2 TABLETS OF 40 MG) ONCE DAILY
     Route: 065
     Dates: start: 201905, end: 20190608
  2. XTANDI [Suspect]
     Active Substance: ENZALUTAMIDE
     Indication: PROSTATE CANCER
     Route: 065
     Dates: start: 201903

REACTIONS (3)
  - Nightmare [Recovered/Resolved]
  - Hallucination [Recovered/Resolved]
  - Cognitive disorder [Recovering/Resolving]

NARRATIVE: CASE EVENT DATE: 201904
